FAERS Safety Report 13284399 (Version 9)
Quarter: 2018Q1

REPORT INFORMATION
  Report Type: Report from Study
  Country: US (occurrence: US)
  Receive Date: 20170301
  Receipt Date: 20180220
  Transmission Date: 20180508
  Serious: Yes (Other)
  Sender: FDA-Public Use
  Company Number: US-JNJFOC-20160121522

PATIENT
  Age: 80 Year
  Sex: Female

DRUGS (30)
  1. ACETAMINOPHEN. [Concomitant]
     Active Substance: ACETAMINOPHEN
  2. ZOFRAN [Concomitant]
     Active Substance: ONDANSETRON HYDROCHLORIDE
     Route: 065
  3. PETHIDINE [Concomitant]
     Active Substance: MEPERIDINE
     Dosage: 25 MG/ML, UNK
     Route: 065
  4. COENZYME Q10 [Concomitant]
     Active Substance: UBIDECARENONE
  5. IMBRUVICA [Suspect]
     Active Substance: IBRUTINIB
     Indication: MANTLE CELL LYMPHOMA
     Route: 048
     Dates: start: 20140203, end: 20170801
  6. ASCORBIC ACID. [Concomitant]
     Active Substance: ASCORBIC ACID
  7. VITAMIN B COMPLEX [Concomitant]
     Active Substance: CYANOCOBALAMIN\DEXPANTHENOL\NIACINAMIDE\PYRIDOXINE HYDROCHLORIDE\RIBOFLAVIN 5^-PHOSPHATE SODIUM\THIAMINE HYDROCHLORIDE\VITAMIN B COMPLEX
  8. IMBRUVICA [Suspect]
     Active Substance: IBRUTINIB
     Indication: MANTLE CELL LYMPHOMA
     Route: 048
     Dates: start: 2016
  9. BENDAMUSTINE [Concomitant]
     Active Substance: BENDAMUSTINE
     Dosage: 125 MG, (70MG/M2) 30 MIN.INFUSION
     Route: 065
  10. BENADRYL [Concomitant]
     Active Substance: DIPHENHYDRAMINE HYDROCHLORIDE
     Route: 065
  11. VITAMIN D3 [Concomitant]
     Active Substance: CHOLECALCIFEROL
  12. SENOKOT [Concomitant]
     Active Substance: SENNOSIDES
  13. DOXYCILLIN [Suspect]
     Active Substance: DOXYCYCLINE HYDROCHLORIDE
     Indication: PRODUCT USED FOR UNKNOWN INDICATION
     Route: 065
  14. VITAMINA B12 [Concomitant]
  15. ADVIL [Concomitant]
     Active Substance: IBUPROFEN
  16. RITUXIMAB. [Concomitant]
     Active Substance: RITUXIMAB
     Dosage: 700 MG, (375MG/M2)
     Route: 065
  17. PROCHLORPERAZINE MALEATE. [Concomitant]
     Active Substance: PROCHLORPERAZINE MALEATE
  18. OXYCODONE AND ACETAMINOPHEN [Concomitant]
     Active Substance: ACETAMINOPHEN\OXYCODONE HYDROCHLORIDE
  19. VITAMIN E [Concomitant]
     Active Substance: .ALPHA.-TOCOPHEROL
  20. IMBRUVICA [Suspect]
     Active Substance: IBRUTINIB
     Indication: MANTLE CELL LYMPHOMA
     Route: 048
     Dates: start: 20140129
  21. LORAZEPAM. [Concomitant]
     Active Substance: LORAZEPAM
  22. COLACE [Concomitant]
     Active Substance: DOCUSATE SODIUM
  23. COD LIVER OIL [Concomitant]
     Active Substance: COD LIVER OIL
  24. VITAMIN A + D [Concomitant]
  25. IMBRUVICA [Suspect]
     Active Substance: IBRUTINIB
     Indication: MANTLE CELL LYMPHOMA
     Dosage: UNK UNK, QOD
     Route: 048
  26. IMBRUVICA [Suspect]
     Active Substance: IBRUTINIB
     Indication: MANTLE CELL LYMPHOMA
     Route: 048
     Dates: start: 20141107, end: 201711
  27. SODIUM CHLORIDE. [Concomitant]
     Active Substance: SODIUM CHLORIDE
     Route: 065
  28. DEXAMETHASONE. [Concomitant]
     Active Substance: DEXAMETHASONE
  29. METHYLPREDNISOLONE SODIUM SUCCINATE. [Concomitant]
     Active Substance: METHYLPREDNISOLONE SODIUM SUCCINATE
     Dosage: 62.5 MG/ML, UNK
     Route: 065
  30. CALCIUM CITRATE [Concomitant]
     Active Substance: CALCIUM CITRATE

REACTIONS (68)
  - Bronchitis [Not Recovered/Not Resolved]
  - Balance disorder [Not Recovered/Not Resolved]
  - Communication disorder [Not Recovered/Not Resolved]
  - Sneezing [Not Recovered/Not Resolved]
  - Nodule [Unknown]
  - Ear pain [Unknown]
  - Fatigue [Not Recovered/Not Resolved]
  - Productive cough [Recovered/Resolved]
  - Mental impairment [Recovering/Resolving]
  - Immunodeficiency [Recovered/Resolved]
  - Tremor [Recovered/Resolved]
  - Skin disorder [Recovered/Resolved]
  - Mucous stools [Unknown]
  - Speech disorder [Not Recovered/Not Resolved]
  - Hypoaesthesia [Unknown]
  - Arthralgia [Recovered/Resolved]
  - Headache [Unknown]
  - Musculoskeletal pain [Not Recovered/Not Resolved]
  - Cerebrovascular accident [Unknown]
  - Nail growth abnormal [Recovering/Resolving]
  - Tendonitis [Unknown]
  - Feeling drunk [Not Recovered/Not Resolved]
  - Hypoacusis [Not Recovered/Not Resolved]
  - Onychoclasis [Recovering/Resolving]
  - Allergy to chemicals [Not Recovered/Not Resolved]
  - Skin wound [Recovered/Resolved]
  - Blood iron decreased [Unknown]
  - Skin haemorrhage [Recovering/Resolving]
  - Viral pharyngitis [Not Recovered/Not Resolved]
  - Influenza [Unknown]
  - Pneumonia [Not Recovered/Not Resolved]
  - Energy increased [Not Recovered/Not Resolved]
  - Dysphagia [Not Recovered/Not Resolved]
  - Pain [Not Recovered/Not Resolved]
  - Chills [Recovered/Resolved]
  - Dyspnoea [Not Recovered/Not Resolved]
  - Dizziness [Recovered/Resolved]
  - Hyperhidrosis [Not Recovered/Not Resolved]
  - Pleural adhesion [Recovered/Resolved]
  - Visual impairment [Recovering/Resolving]
  - Joint stiffness [Recovered/Resolved]
  - Pyrexia [Recovered/Resolved]
  - Myalgia [Not Recovered/Not Resolved]
  - Diarrhoea [Not Recovered/Not Resolved]
  - Petechiae [Not Recovered/Not Resolved]
  - Asthenia [Not Recovered/Not Resolved]
  - Pain in extremity [Recovering/Resolving]
  - Back pain [Not Recovered/Not Resolved]
  - Tympanic membrane perforation [Not Recovered/Not Resolved]
  - Withdrawal syndrome [Recovered/Resolved]
  - Weight increased [Not Recovered/Not Resolved]
  - Increased upper airway secretion [Unknown]
  - Cystitis [Unknown]
  - Contusion [Recovering/Resolving]
  - Neck pain [Not Recovered/Not Resolved]
  - Rash macular [Recovered/Resolved]
  - Malaise [Recovered/Resolved]
  - Epistaxis [Unknown]
  - Musculoskeletal chest pain [Not Recovered/Not Resolved]
  - Ear haemorrhage [Not Recovered/Not Resolved]
  - Depression [Recovering/Resolving]
  - Oropharyngeal discomfort [Unknown]
  - Confusional state [Recovering/Resolving]
  - Lung disorder [Recovering/Resolving]
  - Skin atrophy [Unknown]
  - Painful respiration [Not Recovered/Not Resolved]
  - Muscle spasms [Not Recovered/Not Resolved]
  - Conjunctivitis [Not Recovered/Not Resolved]

NARRATIVE: CASE EVENT DATE: 201402
